FAERS Safety Report 8430142-5 (Version None)
Quarter: 2012Q2

REPORT INFORMATION
  Report Type: 
  Country: None (occurrence: None)
  Receive Date: 20120612
  Receipt Date: 20120606
  Transmission Date: 20120825
  Serious: Yes (Other)
  Sender: FDA-Public Use
  Company Number: FR-MERCK-1206USA01360

PATIENT
  Age: 53 Year
  Sex: Male

DRUGS (1)
  1. PROPECIA [Suspect]
     Indication: ALOPECIA
     Route: 048
     Dates: start: 20080101, end: 20111201

REACTIONS (3)
  - ASTHENIA [None]
  - ATRIAL FIBRILLATION [None]
  - PALPITATIONS [None]
